FAERS Safety Report 12249109 (Version 1)
Quarter: 2016Q2

REPORT INFORMATION
  Report Type: Spontaneous
  Country: US (occurrence: US)
  Receive Date: 20160408
  Receipt Date: 20160408
  Transmission Date: 20160815
  Serious: Yes (Disabling)
  Sender: FDA-Public Use
  Company Number: US-PROCTER_AND_GAMBLE-GS16039524

PATIENT
  Age: 18 Year
  Sex: Male

DRUGS (1)
  1. OLDSPICEAPDO+BSPRAY [Suspect]
     Active Substance: ALUMINUM CHLOROHYDRATE OR ALUMINUM ZIRCONIUM TETRACHLOROHYDREX GLY
     Dosage: 1 APPLIC, 1 /DAY
     Route: 061
     Dates: end: 201603

REACTIONS (4)
  - Chemical burn of skin [Recovered/Resolved]
  - Skin exfoliation [Recovered/Resolved]
  - Axillary pain [Recovered/Resolved]
  - Rash erythematous [Recovered/Resolved]
